FAERS Safety Report 4344121-0 (Version None)
Quarter: 2004Q2

REPORT INFORMATION
  Report Type: 
  Country: None (occurrence: None)
  Receive Date: 20040422
  Receipt Date: 20030911
  Transmission Date: 20050107
  Serious: No
  Sender: FDA-Public Use
  Company Number: US-GLAXOSMITHKLINE-A0431215A

PATIENT

DRUGS (2)
  1. RETROVIR [Suspect]
     Indication: MEDICATION ERROR
     Dosage: 600MG TWICE PER DAY
     Route: 065
  2. NORVIR [Concomitant]
     Dosage: 600MG TWICE PER DAY
     Route: 065

REACTIONS (1)
  - MEDICATION ERROR [None]
